FAERS Safety Report 6619397 (Version 2)
Quarter: 2020Q3

REPORT INFORMATION
  Report Type: Spontaneous
  Country: FI (occurrence: FI)
  Receive Date: 20080421
  Receipt Date: 20081104
  Transmission Date: 20201105
  Serious: Yes (Other)
  Sender: FDA-Public Use
  Company Number: FI-ROCHE-557957

PATIENT
  Age: 74 Year
  Sex: Female

DRUGS (4)
  1. IBANDRONIC ACID. [Suspect]
     Active Substance: IBANDRONIC ACID
     Route: 042
     Dates: start: 200607, end: 200708
  2. XELODA [Concomitant]
     Active Substance: CAPECITABINE
     Indication: BREAST CANCER
     Dosage: DOSE: 1000 MG/M2 X 2
     Route: 048
     Dates: start: 200711, end: 200807
  3. IBANDRONIC ACID. [Suspect]
     Active Substance: IBANDRONIC ACID
     Indication: BREAST CANCER METASTATIC
     Dosage: FORM: ORAL FORMULATION NOS
     Route: 048
     Dates: start: 20070803, end: 20070905
  4. PREDNISOLONE. [Concomitant]
     Active Substance: PREDNISOLONE
     Indication: PEMPHIGOID
     Route: 048

REACTIONS (5)
  - Osteomyelitis [None]
  - Condition aggravated [None]
  - Osteonecrosis [None]
  - Oral infection [None]
  - Metastases to liver [None]

NARRATIVE: CASE EVENT DATE: 20070801
